FAERS Safety Report 10563580 (Version 1)
Quarter: 2014Q4

REPORT INFORMATION
  Report Type: Spontaneous
  Country: US (occurrence: None)
  Receive Date: 20141103
  Receipt Date: 20141103
  Transmission Date: 20150529
  Serious: Yes (Disabling, Other)
  Sender: FDA-Public Use
  Company Number: None

PATIENT
  Age: 55 Year
  Sex: Female
  Weight: 58.97 kg

DRUGS (1)
  1. CIPROFLOXACIN HCL [Suspect]
     Active Substance: CIPROFLOXACIN HYDROCHLORIDE
     Indication: URINARY TRACT INFECTION
     Dosage: 6 PILLS, EVERY 12 HOURS, TAKEN BY MOUTH
     Route: 048
     Dates: start: 20121116, end: 20121119

REACTIONS (1)
  - Tinnitus [None]

NARRATIVE: CASE EVENT DATE: 20121116
